FAERS Safety Report 21522181 (Version 2)
Quarter: 2022Q4

REPORT INFORMATION
  Report Type: Spontaneous
  Country: JP (occurrence: JP)
  Receive Date: 20221028
  Receipt Date: 20221110
  Transmission Date: 20230113
  Serious: Yes (Hospitalization, Other)
  Sender: FDA-Public Use
  Company Number: JP-MALLINCKRODT-T202205680

PATIENT
  Age: 8 Decade
  Sex: Male

DRUGS (3)
  1. NITRIC OXIDE [Suspect]
     Active Substance: NITRIC OXIDE
     Indication: Pulmonary arterial pressure increased
     Dosage: 10 PPM, INHALATION
     Route: 055
  2. NITRIC OXIDE [Suspect]
     Active Substance: NITRIC OXIDE
     Indication: Pulmonary hypertension
     Dosage: 20 PPM, INHALATION
     Route: 055
  3. NITRIC OXIDE [Suspect]
     Active Substance: NITRIC OXIDE
     Dosage: 5 PPM, INHALATION
     Route: 055

REACTIONS (8)
  - Device related sepsis [Recovered/Resolved]
  - Hypotension [Recovered/Resolved]
  - Pulmonary arterial pressure increased [Unknown]
  - Condition aggravated [Unknown]
  - Pulmonary vascular resistance abnormality [Unknown]
  - Intra-aortic balloon placement [Unknown]
  - Loss of personal independence in daily activities [Unknown]
  - Off label use [Unknown]

NARRATIVE: CASE EVENT DATE: 20201225
